FAERS Safety Report 7132348-4 (Version None)
Quarter: 2010Q4

REPORT INFORMATION
  Report Type: 
  Country: None (occurrence: None)
  Receive Date: 20101202
  Receipt Date: 20101201
  Transmission Date: 20110411
  Serious: Yes (Hospitalization)
  Sender: FDA-Public Use
  Company Number: US-GENZYME-FABR-1001636

PATIENT

DRUGS (16)
  1. FABRAZYME [Suspect]
     Indication: FABRY'S DISEASE
     Dosage: 70 MG, QOW
     Route: 042
     Dates: start: 20031015
  2. FABRAZYME [Suspect]
     Dosage: 35 MG, Q2W
     Route: 042
     Dates: start: 20090101
  3. ACETAMINOPHEN [Concomitant]
     Indication: PREMEDICATION
     Route: 048
  4. BENADRYL [Concomitant]
     Indication: PREMEDICATION
     Route: 048
  5. KLOR-CON [Concomitant]
  6. PROGRAF [Concomitant]
  7. HYDROCHLOROTHIAZIDE [Concomitant]
  8. FUROSEMIDE [Concomitant]
  9. METHADONE [Concomitant]
  10. RAPAMUNE [Concomitant]
  11. GABAPENTIN [Concomitant]
  12. LYRICA [Concomitant]
  13. MULTI-VITAMINS [Concomitant]
  14. CALCIUM CARBONATE [Concomitant]
  15. TYLENOL PM [Concomitant]
     Dosage: UNK
  16. HYDROCODONE [Concomitant]
     Dosage: UNK

REACTIONS (2)
  - DEPRESSION [None]
  - SUICIDAL IDEATION [None]
